FAERS Safety Report 7148180-1 (Version None)
Quarter: 2010Q4

REPORT INFORMATION
  Report Type: 
  Country: None (occurrence: None)
  Receive Date: 20101209
  Receipt Date: 20101124
  Transmission Date: 20110411
  Serious: No
  Sender: FDA-Public Use
  Company Number: US-B.I. PHARMACEUTICALS,INC./RIDGEFIELD-2010-BP-13287BP

PATIENT
  Age: 80 Year
  Sex: Female

DRUGS (10)
  1. PRADAXA [Suspect]
     Indication: CEREBROVASCULAR ACCIDENT PROPHYLAXIS
     Dosage: 300 MG
     Route: 048
     Dates: start: 20101118
  2. PRADAXA [Suspect]
     Indication: ATRIAL FIBRILLATION
  3. PRILOSEC [Concomitant]
  4. TOPROL-XL [Concomitant]
  5. DIOVAN [Concomitant]
  6. PLAVIX [Concomitant]
  7. IMDUR [Concomitant]
  8. ASPIRIN [Concomitant]
  9. CRESTOR [Concomitant]
  10. ZOLOFT [Concomitant]

REACTIONS (2)
  - ABDOMINAL DISCOMFORT [None]
  - FREQUENT BOWEL MOVEMENTS [None]
